FAERS Safety Report 25450129 (Version 3)
Quarter: 2025Q3

REPORT INFORMATION
  Report Type: Report from Study
  Country: GB (occurrence: GB)
  Receive Date: 20250618
  Receipt Date: 20250918
  Transmission Date: 20251021
  Serious: Yes (Hospitalization, Other)
  Sender: TAKEDA
  Company Number: GB-TAKEDA-2025TUS054850

PATIENT
  Sex: Female

DRUGS (2)
  1. VEDOLIZUMAB [Suspect]
     Active Substance: VEDOLIZUMAB
     Indication: Colitis ulcerative
     Dosage: 108 MILLIGRAM, Q2WEEKS
  2. VEDOLIZUMAB [Suspect]
     Active Substance: VEDOLIZUMAB

REACTIONS (16)
  - Oxygen saturation decreased [Unknown]
  - Rectal haemorrhage [Unknown]
  - Postmenopausal haemorrhage [Unknown]
  - Tremor [Unknown]
  - Eye irritation [Unknown]
  - Feeling hot [Unknown]
  - Micturition urgency [Unknown]
  - Defaecation urgency [Unknown]
  - Eyelid ptosis [Unknown]
  - Candida infection [Unknown]
  - Abnormal faeces [Unknown]
  - Nervousness [Not Recovered/Not Resolved]
  - Skin irritation [Unknown]
  - Diarrhoea [Unknown]
  - Malaise [Unknown]
  - Constipation [Unknown]
